FAERS Safety Report 8176710-X (Version None)
Quarter: 2012Q1

REPORT INFORMATION
  Report Type: 
  Country: None (occurrence: None)
  Receive Date: 20120301
  Receipt Date: 20120217
  Transmission Date: 20120608
  Serious: No
  Sender: FDA-Public Use
  Company Number: CA-ELI_LILLY_AND_COMPANY-CA201202005853

PATIENT
  Sex: Female

DRUGS (2)
  1. CYMBALTA [Suspect]
     Indication: NECK PAIN
     Dosage: 60 MG, UNK
  2. CYMBALTA [Suspect]
     Dosage: 30 MG, UNK

REACTIONS (1)
  - HEPATIC ENZYME INCREASED [None]
